FAERS Safety Report 5140806-7 (Version None)
Quarter: 2006Q4

REPORT INFORMATION
  Report Type: 
  Country: None (occurrence: None)
  Receive Date: 20061026
  Receipt Date: 20061019
  Transmission Date: 20070319
  Serious: Yes (Hospitalization)
  Sender: FDA-Public Use
  Company Number: GXKR2006LB06558

PATIENT
  Age: 66 Year
  Sex: Male

DRUGS (8)
  1. ACETYLSALICYCLIC ACID  (NGX) ( ACETYLSALICYCLIC ACID ) [Suspect]
     Dosage: 100 MG, QD,
  2. CLOPIDOGREL [Suspect]
     Dosage: 75 MG, QD,
  3. RABEPRAZOLE (RABEPRAZOLE) [Concomitant]
  4. CAPTOPRIL [Concomitant]
  5. CARVEDILOL [Concomitant]
  6. DIGOXIN [Concomitant]
  7. SERTRALINE [Concomitant]
  8. ZOLPIDEM TARTRATE [Concomitant]

REACTIONS (15)
  - ABDOMINAL HAEMATOMA [None]
  - ABDOMINAL TENDERNESS [None]
  - BLOOD CREATININE INCREASED [None]
  - BLOOD PRESSURE DECREASED [None]
  - BLOOD UREA INCREASED [None]
  - DRUG INTERACTION [None]
  - FLANK PAIN [None]
  - HAEMATOCRIT DECREASED [None]
  - HAEMOGLOBIN DECREASED [None]
  - NAUSEA [None]
  - PERIRENAL HAEMATOMA [None]
  - RETROPERITONEAL HAEMORRHAGE [None]
  - THERAPY NON-RESPONDER [None]
  - VASCULAR PSEUDOANEURYSM [None]
  - VOMITING [None]
